FAERS Safety Report 7586207-3 (Version None)
Quarter: 2011Q3

REPORT INFORMATION
  Report Type: 
  Country: None (occurrence: None)
  Receive Date: 20110701
  Receipt Date: 20110627
  Transmission Date: 20111222
  Serious: Yes (Life-Threatening, Hospitalization, Other)
  Sender: FDA-Public Use
  Company Number: GB-SANOFI-AVENTIS-2011SA034558

PATIENT
  Age: 74 Year
  Sex: Female

DRUGS (12)
  1. HEPARIN SODIUM [Suspect]
     Indication: PERICARDITIS
     Route: 042
  2. TENECTEPLASE [Suspect]
     Route: 065
  3. TENECTEPLASE [Suspect]
     Indication: THROMBOLYSIS
     Route: 065
  4. TENECTEPLASE [Suspect]
     Indication: PERICARDITIS
     Route: 065
  5. CLOPIDOGREL BISULFATE [Suspect]
     Indication: PERICARDITIS
     Route: 065
  6. ATENOLOL [Suspect]
     Route: 065
  7. HEPARIN SODIUM [Suspect]
     Route: 042
  8. ASPIRIN [Suspect]
     Route: 065
  9. ATENOLOL [Suspect]
     Indication: PERICARDITIS
     Route: 065
  10. HEPARIN SODIUM [Suspect]
     Indication: ANTICOAGULANT THERAPY
     Route: 042
  11. ASPIRIN [Suspect]
     Indication: PERICARDITIS
     Route: 065
  12. ASPIRIN [Suspect]
     Indication: PLATELET AGGREGATION INHIBITION
     Route: 065

REACTIONS (8)
  - TACHYCARDIA [None]
  - ANURIA [None]
  - PERICARDIAL HAEMORRHAGE [None]
  - CARDIAC ARREST [None]
  - HYPOTENSION [None]
  - SHOCK [None]
  - CARDIAC TAMPONADE [None]
  - PULSELESS ELECTRICAL ACTIVITY [None]
